FAERS Safety Report 4263845-7 (Version None)
Quarter: 2004Q1

REPORT INFORMATION
  Report Type: 
  Country: None (occurrence: None)
  Receive Date: 20040106
  Receipt Date: 20031120
  Transmission Date: 20041129
  Serious: Yes (Death, Hospitalization)
  Sender: FDA-Public Use
  Company Number: PHNU2003DE04110

PATIENT
  Age: 76 Year
  Sex: Female
  Weight: 51 kg

DRUGS (9)
  1. ESIDRIX [Suspect]
     Dosage: 12.5MG/DAY
     Route: 048
     Dates: start: 20030527, end: 20030625
  2. ZOLOFT [Suspect]
     Dosage: 25MG/DAY
     Route: 048
     Dates: start: 20030524, end: 20030526
  3. ZOLOFT [Suspect]
     Dosage: 50MG/DAY
     Route: 048
     Dates: start: 20030527, end: 20030601
  4. ZOLOFT [Suspect]
     Dosage: 100MG/DAY
     Route: 048
     Dates: start: 20030602, end: 20030605
  5. TAVOR [Suspect]
     Dosage: 0.5MG/DAY
     Route: 048
     Dates: start: 20030602
  6. XIMOVAN ^AVENTIS PHARMA^ [Concomitant]
     Dosage: 3.75MG/DAY
     Route: 048
     Dates: start: 20030523
  7. KREON [Concomitant]
     Dosage: 2000MG/DAY
     Route: 048
  8. HALDOL ^JANSSEN-CILAG^ [Concomitant]
     Dosage: 4MG/DAY
     Route: 065
     Dates: start: 20030608
  9. NORTRIPTYLINE HCL [Concomitant]
     Dosage: 50MG/DAY
     Route: 065
     Dates: start: 20030610

REACTIONS (8)
  - BLOOD OSMOLARITY DECREASED [None]
  - COLON CANCER [None]
  - HYPOKALAEMIA [None]
  - HYPONATRAEMIA [None]
  - INAPPROPRIATE ANTIDIURETIC HORMONE SECRETION [None]
  - LARGE INTESTINE PERFORATION [None]
  - POST PROCEDURAL COMPLICATION [None]
  - URINARY TRACT INFECTION [None]
